FAERS Safety Report 13679831 (Version 2)
Quarter: 2021Q2

REPORT INFORMATION
  Report Type: Spontaneous
  Country: US (occurrence: US)
  Receive Date: 20170622
  Receipt Date: 20210531
  Transmission Date: 20210716
  Serious: Yes (Other)
  Sender: FDA-Public Use
  Company Number: US-ALLERGAN-1725930US

PATIENT
  Sex: Male

DRUGS (1)
  1. VILAZODONE HCL UNK [Suspect]
     Active Substance: VILAZODONE HYDROCHLORIDE
     Indication: ACCIDENTAL EXPOSURE TO PRODUCT BY CHILD
     Route: 048

REACTIONS (3)
  - Status epilepticus [Recovered/Resolved]
  - Accidental exposure to product by child [Unknown]
  - Overdose [Unknown]
